FAERS Safety Report 8474407-X (Version None)
Quarter: 2012Q2

REPORT INFORMATION
  Report Type: 
  Country: None (occurrence: None)
  Receive Date: 20120628
  Receipt Date: 20120620
  Transmission Date: 20120825
  Serious: Yes (Death, Other)
  Sender: FDA-Public Use
  Company Number: PHHY2010JP85161

PATIENT
  Sex: Male

DRUGS (8)
  1. DIFLUCAN [Concomitant]
     Dosage: 100 MG, UNK
     Route: 048
     Dates: start: 20090717, end: 20100802
  2. TASIGNA [Suspect]
     Indication: CHRONIC MYELOID LEUKAEMIA
     Dosage: 400 MG, QD
     Route: 048
     Dates: start: 20090410, end: 20090716
  3. EBASTINE [Concomitant]
     Dosage: 10 MG, UNK
     Route: 048
     Dates: start: 20090410, end: 20100802
  4. FUNGIZONE [Concomitant]
     Dosage: 200 MG, UNK
     Route: 048
     Dates: start: 20090512, end: 20090721
  5. TASIGNA [Suspect]
     Dosage: 200 MG, QD
     Route: 048
     Dates: start: 20090717, end: 20100722
  6. PANTOSIN [Concomitant]
     Dosage: 300 MG, UNK
     Route: 048
     Dates: start: 20090410, end: 20100802
  7. ASPIRIN [Concomitant]
     Dosage: 100 MG, UNK
     Route: 048
     Dates: start: 20090410, end: 20100802
  8. PLETAL [Concomitant]
     Dosage: 200 MG, UNK
     Route: 048
     Dates: start: 20100105, end: 20100802

REACTIONS (4)
  - BLOOD GLUCOSE INCREASED [None]
  - PNEUMONIA [None]
  - BLOOD POTASSIUM DECREASED [None]
  - BLOOD PHOSPHORUS DECREASED [None]
